FAERS Safety Report 8431589-3 (Version None)
Quarter: 2012Q2

REPORT INFORMATION
  Report Type: 
  Country: None (occurrence: None)
  Receive Date: 20120613
  Receipt Date: 20120605
  Transmission Date: 20120825
  Serious: Yes (Hospitalization)
  Sender: FDA-Public Use
  Company Number: US-US-EMD SERONO, INC.-7089260

PATIENT
  Sex: Female

DRUGS (4)
  1. OXYCODONE HCL [Concomitant]
     Indication: INTERVERTEBRAL DISC PROTRUSION
  2. LIDOCAINE [Concomitant]
     Indication: INTERVERTEBRAL DISC PROTRUSION
  3. REBIF [Suspect]
     Indication: MULTIPLE SCLEROSIS
     Route: 058
     Dates: start: 20101116
  4. OXYCONTIN [Concomitant]
     Indication: INTERVERTEBRAL DISC PROTRUSION

REACTIONS (5)
  - INFLUENZA LIKE ILLNESS [None]
  - TRANSIENT ISCHAEMIC ATTACK [None]
  - MULTIPLE SCLEROSIS RELAPSE [None]
  - INJECTION SITE ERYTHEMA [None]
  - INAPPROPRIATE SCHEDULE OF DRUG ADMINISTRATION [None]
